FAERS Safety Report 22221572 (Version 3)
Quarter: 2024Q4

REPORT INFORMATION
  Report Type: Report from Study
  Country: US (occurrence: US)
  Receive Date: 20230418
  Receipt Date: 20241231
  Transmission Date: 20250114
  Serious: Yes (Hospitalization)
  Sender: ROCHE
  Company Number: US-ROCHE-3327522

PATIENT
  Age: 59 Year
  Sex: Female
  Weight: 72.57 kg

DRUGS (5)
  1. OCREVUS [Suspect]
     Active Substance: OCRELIZUMAB
     Indication: Primary progressive multiple sclerosis
     Dosage: SUBSEQUENTLY FOLLOWED BY EVERY 6 MONTHS?DATE OF MOST RECENT INFUSION: 12/APR/2023
     Route: 042
     Dates: start: 20220921
  2. OCREVUS [Suspect]
     Active Substance: OCRELIZUMAB
     Indication: Stiff person syndrome
     Route: 042
     Dates: start: 20221005
  3. OCREVUS [Suspect]
     Active Substance: OCRELIZUMAB
     Indication: Relapsing multiple sclerosis
  4. MAGNESIUM [Concomitant]
     Active Substance: MAGNESIUM
     Route: 048
  5. KETAMINE [Concomitant]
     Active Substance: KETAMINE

REACTIONS (6)
  - Urinary tract infection [Recovered/Resolved]
  - Nasopharyngitis [Recovered/Resolved]
  - Weight increased [Unknown]
  - Muscle spasms [Unknown]
  - Stiff person syndrome [Unknown]
  - Pain in extremity [Unknown]

NARRATIVE: CASE EVENT DATE: 20230301
